FAERS Safety Report 5021043-3 (Version None)
Quarter: 2006Q2

REPORT INFORMATION
  Report Type: 
  Country: None (occurrence: None)
  Receive Date: 20060414
  Receipt Date: 20050906
  Transmission Date: 20061013
  Serious: Yes (Other)
  Sender: FDA-Public Use
  Company Number: US-JNJFOC-20050804680

PATIENT
  Age: 67 Year
  Sex: Male

DRUGS (7)
  1. ULTRAM [Suspect]
     Indication: PAIN
     Dosage: 2 IN 1 DAY, ORAL
     Route: 048
     Dates: start: 20050201
  2. EFFEXOR [Concomitant]
  3. REMINYL (GALANTAMINE HEBR) [Concomitant]
  4. CARDIZEM [Concomitant]
  5. HYTRIN [Concomitant]
  6. ZELNORM [Concomitant]
  7. POTASSIUM (POTASSIUM) [Concomitant]

REACTIONS (1)
  - GRAND MAL CONVULSION [None]
